FAERS Safety Report 7112136-5 (Version None)
Quarter: 2010Q4

REPORT INFORMATION
  Report Type: 
  Country: None (occurrence: None)
  Receive Date: 20101119
  Receipt Date: 20091217
  Transmission Date: 20110411
  Serious: No
  Sender: FDA-Public Use
  Company Number: A0835634A

PATIENT
  Age: 65 Year
  Sex: Male

DRUGS (2)
  1. AVODART [Suspect]
     Indication: BENIGN PROSTATIC HYPERPLASIA
     Dosage: .5MG PER DAY
     Route: 048
     Dates: start: 20080801, end: 20091216
  2. CRESTOR [Concomitant]

REACTIONS (2)
  - BREAST PAIN [None]
  - DRUG INEFFECTIVE [None]
